FAERS Safety Report 4659121-0 (Version None)
Quarter: 2005Q2

REPORT INFORMATION
  Report Type: 
  Country: None (occurrence: None)
  Receive Date: 20050509
  Receipt Date: 20050426
  Transmission Date: 20051028
  Serious: Yes (Other)
  Sender: FDA-Public Use
  Company Number: 2005066433

PATIENT
  Age: 53 Year
  Sex: Female

DRUGS (5)
  1. PROVERA [Suspect]
     Indication: HORMONE REPLACEMENT THERAPY
     Dosage: 5 MG (DAILY)
  2. CONJUGATED ESTROGENS [Concomitant]
  3. AMLODIPINE BESYLATE [Concomitant]
  4. AMOSULALOL HYDROCHLORIDE (AMOSULALOL HYDROCHLORIDE) [Concomitant]
  5. . [Concomitant]

REACTIONS (2)
  - CONDITION AGGRAVATED [None]
  - UTERINE LEIOMYOMA [None]
